FAERS Safety Report 9095994 (Version 1)
Quarter: 2013Q1

REPORT INFORMATION
  Report Type: Spontaneous
  Country: US (occurrence: US)
  Receive Date: 20130207
  Receipt Date: 20130207
  Transmission Date: 20140127
  Serious: No
  Sender: FDA-Public Use
  Company Number: US-B.I. PHARMACEUTICALS,INC./RIDGEFIELD-2013-BI-03444BP

PATIENT
  Age: 65 Year
  Sex: Male
  Weight: 87 kg

DRUGS (5)
  1. PRADAXA [Suspect]
     Indication: CEREBROVASCULAR ACCIDENT PROPHYLAXIS
     Dosage: 300 MG
     Route: 048
     Dates: start: 20130204
  2. PRADAXA [Suspect]
     Indication: ATRIAL FIBRILLATION
  3. METOPROLOL [Concomitant]
     Indication: HEART RATE INCREASED
     Dosage: 50 MG
     Route: 048
     Dates: start: 2011
  4. DILTIAZEM [Concomitant]
     Indication: HEART RATE INCREASED
     Dosage: 120 MG
     Route: 048
     Dates: start: 2011
  5. MULTAQ [Concomitant]
     Indication: ARRHYTHMIA
     Dosage: 800 MG
     Route: 048
     Dates: start: 2011

REACTIONS (5)
  - Headache [Not Recovered/Not Resolved]
  - Dizziness exertional [Not Recovered/Not Resolved]
  - Tinnitus [Not Recovered/Not Resolved]
  - Asthenia [Not Recovered/Not Resolved]
  - Dizziness [Not Recovered/Not Resolved]
